FAERS Safety Report 6788715-1 (Version None)
Quarter: 2010Q2

REPORT INFORMATION
  Report Type: 
  Country: None (occurrence: None)
  Receive Date: 20100623
  Receipt Date: 20080507
  Transmission Date: 20101027
  Serious: No
  Sender: FDA-Public Use
  Company Number: US-PFIZER INC-2008039829

PATIENT
  Sex: Female
  Weight: 54.545 kg

DRUGS (3)
  1. GEODON [Suspect]
     Indication: BIPOLAR DISORDER
     Dates: start: 20071101, end: 20080501
  2. CYMBALTA [Concomitant]
  3. ATARAX [Concomitant]

REACTIONS (4)
  - FEELING ABNORMAL [None]
  - GASTRIC DISORDER [None]
  - NAUSEA [None]
  - WITHDRAWAL SYNDROME [None]
